FAERS Safety Report 5331550-1 (Version None)
Quarter: 2007Q2

REPORT INFORMATION
  Report Type: 
  Country: None (occurrence: None)
  Receive Date: 20070522
  Receipt Date: 20070514
  Transmission Date: 20071010
  Serious: Yes (Other)
  Sender: FDA-Public Use
  Company Number: US-ELI_LILLY_AND_COMPANY-US200705002938

PATIENT
  Age: 68 Year
  Sex: Male

DRUGS (4)
  1. CYMBALTA [Suspect]
     Indication: PAIN
     Dosage: 30 MG, UNK
     Dates: start: 20070509, end: 20070509
  2. METOPROLOL SUCCINATE [Concomitant]
     Indication: HYPERTENSION
     Dosage: 100 MG, 2/D
  3. OXYCODONE W/PARACETAMOL [Concomitant]
     Indication: PAIN
  4. AMBIEN [Concomitant]
     Indication: SLEEP DISORDER
     Dosage: 1 D/F, EACH EVENING

REACTIONS (1)
  - HYPERTENSION [None]
